FAERS Safety Report 6544804-8 (Version None)
Quarter: 2010Q1

REPORT INFORMATION
  Report Type: 
  Country: None (occurrence: None)
  Receive Date: 20100121
  Receipt Date: 20100112
  Transmission Date: 20100710
  Serious: Yes (Other)
  Sender: FDA-Public Use
  Company Number: ES-ROXANE LABORATORIES, INC.-2010-RO-00044RO

PATIENT
  Age: 44 Year
  Sex: Female

DRUGS (5)
  1. TOPIRAMATE [Suspect]
     Indication: ANXIETY
     Dosage: 200 MG
  2. TOPIRAMATE [Suspect]
     Indication: DEPRESSION
  3. TOPIRAMATE [Suspect]
     Indication: BULIMIA NERVOSA
  4. PAROXETINE HCL [Suspect]
  5. VITAMIN B-12 [Concomitant]
     Indication: VITAMIN B12 DEFICIENCY
     Route: 030

REACTIONS (1)
  - VITAMIN B12 DEFICIENCY [None]
